FAERS Safety Report 6309713-8 (Version None)
Quarter: 2009Q3

REPORT INFORMATION
  Report Type: 
  Country: None (occurrence: None)
  Receive Date: 20090814
  Receipt Date: 20090807
  Transmission Date: 20100115
  Serious: Yes (Hospitalization)
  Sender: FDA-Public Use
  Company Number: PHHY2009JP33380

PATIENT
  Age: 48 Year
  Sex: Female

DRUGS (3)
  1. SANDOSTATIN [Suspect]
     Indication: CHYLOTHORAX
     Dosage: 200 TO 800 UG PER DAY
     Route: 058
     Dates: start: 20070202, end: 20070327
  2. ELASPOL [Concomitant]
     Dosage: UNK
  3. PROPOFOL [Concomitant]
     Dosage: UNK
     Dates: start: 20061113, end: 20061227

REACTIONS (1)
  - MUSCLE ATROPHY [None]
